FAERS Safety Report 6304496-X (Version None)
Quarter: 2009Q3

REPORT INFORMATION
  Report Type: 
  Country: None (occurrence: None)
  Receive Date: 20090811
  Receipt Date: 20090729
  Transmission Date: 20100115
  Serious: Yes (Hospitalization, Other)
  Sender: FDA-Public Use
  Company Number: US-ROCHE-552238

PATIENT
  Sex: Male
  Weight: 83.9 kg

DRUGS (6)
  1. ACCUTANE [Suspect]
     Indication: ACNE
     Dosage: THE PATIENT WAS DISPENSED ACCUTANE 40 MG CAPSULE ON 11 MARCH 1994 AND 17 OCTOBER 1994.
     Route: 065
     Dates: start: 19940311, end: 19950701
  2. ACCUTANE [Suspect]
     Dosage: THE PATIENT WAS DISPENSED ACCUTANE 40 MG CAPS ON 17-OCT- 1995 ON MONDAYS, WEDNESDAYS, + FRIDAYS
     Route: 065
     Dates: start: 19951017, end: 19951101
  3. ACCUTANE [Suspect]
     Dosage: THE PATIENT WAS DISPENSED ACCUTANE 40 MG CAPS ON 27-NOV-1995 AND 15-JAN-1996 AT A DOSE OF 40/80
     Route: 065
     Dates: start: 19951127, end: 19960301
  4. ACCUTANE [Suspect]
     Dosage: THE PATIENT WAS DISPENSED ACCUTAME 40 MG CAPSULE ON 27 NOVEMBER 1996.
     Route: 065
     Dates: start: 19961127, end: 19970901
  5. ACCUTANE [Suspect]
     Dosage: THE PATIENT WAS DISPENSED ACCUTANE 40 MG CAPSULE ON 22 MARCH 1999
     Route: 065
     Dates: start: 19990322, end: 19990901
  6. COUMADIN [Concomitant]
     Route: 065

REACTIONS (12)
  - ANXIETY [None]
  - CHOLANGITIS SCLEROSING [None]
  - COLITIS ULCERATIVE [None]
  - CROHN'S DISEASE [None]
  - DERMOID CYST [None]
  - EPIDIDYMITIS [None]
  - INFLAMMATORY BOWEL DISEASE [None]
  - KERATOSIS PILARIS [None]
  - PAIN [None]
  - PNEUMONITIS [None]
  - SKIN PAPILLOMA [None]
  - VIRAL PHARYNGITIS [None]
